FAERS Safety Report 5809450-X (Version None)
Quarter: 2008Q3

REPORT INFORMATION
  Report Type: 
  Country: None (occurrence: None)
  Receive Date: 20080715
  Receipt Date: 20080708
  Transmission Date: 20090109
  Serious: Yes (Hospitalization)
  Sender: FDA-Public Use
  Company Number: US-JNJFOC-20080702450

PATIENT
  Age: 79 Year
  Sex: Female
  Weight: 48.08 kg

DRUGS (3)
  1. LEVAQUIN [Suspect]
     Indication: CLOSTRIDIAL INFECTION
     Route: 065
  2. FLAGYL [Concomitant]
     Indication: CLOSTRIDIAL INFECTION
  3. VANCOMYCIN HCL [Concomitant]
     Indication: DRUG USE FOR UNKNOWN INDICATION

REACTIONS (2)
  - ARTHRALGIA [None]
  - WEIGHT DECREASED [None]
